FAERS Safety Report 7204776-X (Version None)
Quarter: 2010Q4

REPORT INFORMATION
  Report Type: 
  Country: None (occurrence: None)
  Receive Date: 20101217
  Receipt Date: 20101207
  Transmission Date: 20110411
  Serious: Yes (Hospitalization)
  Sender: FDA-Public Use
  Company Number: 2010S1001025

PATIENT
  Age: 76 Year
  Sex: Male

DRUGS (5)
  1. LIVALO [Suspect]
     Indication: HYPERCHOLESTEROLAEMIA
     Dosage: 4 MG;1X;PO
     Route: 048
     Dates: start: 20100518, end: 20101115
  2. BLOPRESS [Concomitant]
  3. ADALAT CC [Concomitant]
  4. MELBIN /00082702/ [Concomitant]
  5. MIGLITOL [Concomitant]

REACTIONS (3)
  - BLOOD GLUCOSE INCREASED [None]
  - GLYCOSYLATED HAEMOGLOBIN INCREASED [None]
  - WEIGHT DECREASED [None]
